FAERS Safety Report 7787589-X (Version None)
Quarter: 2011Q3

REPORT INFORMATION
  Report Type: 
  Country: None (occurrence: None)
  Receive Date: 20110929
  Receipt Date: 20110922
  Transmission Date: 20111222
  Serious: Yes (Death)
  Sender: FDA-Public Use
  Company Number: US-GILEAD-2011-0044140

PATIENT

DRUGS (26)
  1. NOREPINEPHRINE BITARTRATE [Concomitant]
  2. PRISMASATE [Concomitant]
  3. PROTONIX [Concomitant]
  4. PROAMATINE [Concomitant]
  5. ZOFRAN [Concomitant]
  6. DUONEB [Concomitant]
  7. MYLANTA                            /00036701/ [Concomitant]
  8. MIRALAX [Concomitant]
  9. SODIUM BICARBONATE [Concomitant]
  10. POTASSIUM CHLORIDE [Concomitant]
  11. CALCIUM CHLORIDE                   /00203801/ [Concomitant]
  12. DEXTROSE [Concomitant]
  13. SAMSCA [Concomitant]
  14. ZYLOPRIM [Concomitant]
  15. SODIUM CHLORIDE [Concomitant]
  16. NORCO [Concomitant]
  17. COLACE [Concomitant]
  18. DULCOLAX [Concomitant]
  19. OS-CAL                             /00108001/ [Concomitant]
  20. ZETIA [Concomitant]
  21. PHENERGAN VC W/ CODEINE [Concomitant]
  22. TYLENOL (CAPLET) [Concomitant]
  23. MAALOX                             /00091001/ [Concomitant]
  24. LETAIRIS [Suspect]
     Route: 048
     Dates: start: 20110826
  25. ULTRAM [Concomitant]
  26. ROBITUSSIN-DM [Concomitant]

REACTIONS (1)
  - UNEVALUABLE EVENT [None]
